FAERS Safety Report 5831223-2 (Version None)
Quarter: 2008Q3

REPORT INFORMATION
  Report Type: 
  Country: None (occurrence: None)
  Receive Date: 20080801
  Receipt Date: 20070712
  Transmission Date: 20090109
  Serious: Yes (Other)
  Sender: FDA-Public Use
  Company Number: US-BRISTOL-MYERS SQUIBB COMPANY-13843933

PATIENT
  Sex: Male
  Weight: 120 kg

DRUGS (12)
  1. COUMADIN [Suspect]
     Indication: THROMBOSIS
     Route: 048
     Dates: start: 20060701
  2. COUMADIN [Suspect]
     Indication: CARDIAC DISORDER
     Route: 048
     Dates: start: 20060701
  3. METFORMIN HCL [Concomitant]
  4. GEMFIBROZIL [Concomitant]
  5. FUROSEMIDE [Concomitant]
  6. LOVASTATIN [Concomitant]
  7. FLUOXETINE [Concomitant]
  8. LISINOPRIL [Concomitant]
  9. POTASSIUM CHLORIDE [Concomitant]
  10. COREG [Concomitant]
  11. SPIRONOLACTONE [Concomitant]
  12. ASPIRIN [Concomitant]

REACTIONS (2)
  - INTERNATIONAL NORMALISED RATIO DECREASED [None]
  - INTERNATIONAL NORMALISED RATIO INCREASED [None]
